FAERS Safety Report 15711756 (Version 1)
Quarter: 2018Q4

REPORT INFORMATION
  Report Type: Spontaneous
  Country: GB (occurrence: GB)
  Receive Date: 20181212
  Receipt Date: 20181212
  Transmission Date: 20190205
  Serious: Yes (Disabling, Other)
  Sender: FDA-Public Use
  Company Number: GB-TEVA-2018-GB-984660

PATIENT
  Age: 37 Year
  Sex: Female
  Weight: 61 kg

DRUGS (14)
  1. ADVAGRAF [Concomitant]
     Active Substance: TACROLIMUS
     Dosage: 1 DOSAGE FORMS DAILY;
     Dates: start: 20180515
  2. MYFORTIC [Concomitant]
     Active Substance: MYCOPHENOLATE SODIUM
     Dosage: 2 DOSAGE FORMS DAILY;
     Dates: start: 20180515
  3. PREDNISOLONE. [Concomitant]
     Active Substance: PREDNISOLONE
     Dosage: 1 DOSAGE FORMS DAILY; MORNING
     Dates: start: 20180515
  4. SOLIFENACIN [Suspect]
     Active Substance: SOLIFENACIN
     Dosage: 5 MILLIGRAM DAILY;
     Route: 048
     Dates: start: 20181011, end: 20181112
  5. ACETYLSALICYLIC ACID [Concomitant]
     Active Substance: ASPIRIN
     Dosage: 1 DOSAGE FORMS DAILY; MORNING
     Dates: start: 20180515
  6. CEFACLOR. [Concomitant]
     Active Substance: CEFACLOR
     Dosage: 1 DOSAGE FORMS DAILY; NIGHT
     Dates: start: 20180515
  7. CHLORAMPHENICOL [Concomitant]
     Active Substance: CHLORAMPHENICOL
     Dosage: 4 GTT DAILY;
     Dates: start: 20180818, end: 20180819
  8. CLOPIDOGREL [Concomitant]
     Active Substance: CLOPIDOGREL BISULFATE
     Dosage: 1 DOSAGE FORMS DAILY; MORNING
     Dates: start: 20180515
  9. FUROSEMIDE. [Concomitant]
     Active Substance: FUROSEMIDE
     Dosage: 1 DOSAGE FORMS DAILY; MORNING
     Dates: start: 20180515
  10. ZOPICLONE [Concomitant]
     Active Substance: ZOPICLONE
     Dosage: 1 DOSAGE FORMS DAILY; AT NIGHT
     Dates: start: 20180515
  11. FOLIC ACID. [Concomitant]
     Active Substance: FOLIC ACID
     Dosage: 1 DOSAGE FORMS DAILY; MORNING
     Dates: start: 20180515
  12. DIPROBASE [Concomitant]
     Active Substance: CHLOROCRESOL
     Dates: start: 20180910, end: 20181008
  13. RANITIDINE. [Concomitant]
     Active Substance: RANITIDINE
     Dosage: 2 DOSAGE FORMS DAILY;
     Dates: start: 20180515
  14. CITALOPRAM [Concomitant]
     Active Substance: CITALOPRAM HYDROBROMIDE
     Dosage: 1 DOSAGE FORMS DAILY; NIGHT
     Dates: start: 20180515

REACTIONS (3)
  - Pruritus generalised [Recovered/Resolved]
  - Angioedema [Recovering/Resolving]
  - Choking sensation [Unknown]

NARRATIVE: CASE EVENT DATE: 20181013
